FAERS Safety Report 4491702-X (Version None)
Quarter: 2004Q4

REPORT INFORMATION
  Report Type: 
  Country: None (occurrence: None)
  Receive Date: 20041103
  Receipt Date: 20040709
  Transmission Date: 20050328
  Serious: Yes (Hospitalization)
  Sender: FDA-Public Use
  Company Number: US-ROCHE-374143

PATIENT
  Age: 18 Year
  Sex: Male
  Weight: 49.9 kg

DRUGS (1)
  1. FUZEON [Suspect]
     Indication: HIV INFECTION
     Dosage: ROUTE REPORTED AS: INJECTION.
     Route: 050
     Dates: start: 20040423

REACTIONS (6)
  - BLOOD GLUCOSE ABNORMAL [None]
  - DIZZINESS [None]
  - HERPES ZOSTER [None]
  - HYPOTENSION [None]
  - INJECTION SITE NODULE [None]
  - PAIN [None]
